FAERS Safety Report 7586788-X (Version None)
Quarter: 2011Q2

REPORT INFORMATION
  Report Type: 
  Country: None (occurrence: None)
  Receive Date: 20110603
  Receipt Date: 20110418
  Transmission Date: 20111010
  Serious: No
  Sender: FDA-Public Use
  Company Number: 2011SP017496

PATIENT
  Age: 20 Year
  Sex: Female

DRUGS (1)
  1. SAPHRIS [Suspect]
     Indication: SCHIZOPHRENIA
     Dosage: 5 MG;HS;SL
     Route: 060

REACTIONS (4)
  - UNDERDOSE [None]
  - PARAESTHESIA [None]
  - BURNING SENSATION [None]
  - INAPPROPRIATE SCHEDULE OF DRUG ADMINISTRATION [None]
